FAERS Safety Report 14553567 (Version 1)
Quarter: 2018Q1

REPORT INFORMATION
  Report Type: Spontaneous
  Country: SA (occurrence: SA)
  Receive Date: 20180220
  Receipt Date: 20180220
  Transmission Date: 20180509
  Serious: Yes (Hospitalization, Other)
  Sender: FDA-Public Use
  Company Number: SA-IMPAX LABORATORIES, INC-2018-IPXL-00435

PATIENT
  Age: 10 Year
  Sex: Male
  Weight: 55 kg

DRUGS (2)
  1. HYDROCORTISONE. [Suspect]
     Active Substance: HYDROCORTISONE
     Dosage: 10 MG, 2 /DAY
     Route: 065
  2. HYDROCORTISONE. [Suspect]
     Active Substance: HYDROCORTISONE
     Indication: HYPOGLYCAEMIA
     Dosage: UNK
     Route: 065

REACTIONS (5)
  - Insulinoma [Recovered/Resolved]
  - Obesity [Recovering/Resolving]
  - Fluid retention [Recovered/Resolved]
  - Cushingoid [Unknown]
  - Pulmonary oedema [Recovered/Resolved]
